FAERS Safety Report 18554819 (Version 2)
Quarter: 2020Q4

REPORT INFORMATION
  Report Type: Spontaneous
  Country: FR (occurrence: FR)
  Receive Date: 20201127
  Receipt Date: 20201130
  Transmission Date: 20210114
  Serious: Yes (Hospitalization, Other)
  Sender: FDA-Public Use
  Company Number: FR-009507513-2011FRA015326

PATIENT
  Age: 27 Year
  Sex: Female

DRUGS (1)
  1. NEXPLANON [Suspect]
     Active Substance: ETONOGESTREL
     Dosage: 1 IMPANT, IN THE ARM
     Route: 059
     Dates: start: 20200923

REACTIONS (5)
  - Inappropriate schedule of product administration [Unknown]
  - Deep vein thrombosis [Unknown]
  - Coronavirus infection [Unknown]
  - Pulmonary embolism [Unknown]
  - Pulmonary fibrosis [Unknown]

NARRATIVE: CASE EVENT DATE: 2020
